FAERS Safety Report 11178185 (Version 1)
Quarter: 2015Q2

REPORT INFORMATION
  Report Type: Spontaneous
  Country: US (occurrence: None)
  Receive Date: 20150515
  Receipt Date: 20150515
  Transmission Date: 20150821
  Serious: Yes (Other)
  Sender: FDA-Public Use
  Company Number: 2015000942

PATIENT
  Age: 43 Year
  Sex: Female
  Weight: 113 kg

DRUGS (9)
  1. LEXAPRO [Concomitant]
     Active Substance: ESCITALOPRAM OXALATE
  2. PENTASA [Concomitant]
     Active Substance: MESALAMINE
  3. PROVIGIL [Concomitant]
     Active Substance: MODAFINIL
  4. LOSARTAN [Concomitant]
     Active Substance: LOSARTAN
  5. CIMZIA [Suspect]
     Active Substance: CERTOLIZUMAB PEGOL
     Indication: OFF LABEL USE
     Route: 058
     Dates: start: 201404, end: 201501
  6. NORVASC [Concomitant]
     Active Substance: AMLODIPINE BESYLATE
  7. CIMZIA [Suspect]
     Active Substance: CERTOLIZUMAB PEGOL
     Indication: CROHN^S DISEASE
     Route: 058
     Dates: start: 201404, end: 201501
  8. IMURAN [Concomitant]
     Active Substance: AZATHIOPRINE
  9. PRILOSEC (OMEPRAZOLE) [Concomitant]
     Active Substance: OMEPRAZOLE MAGNESIUM

REACTIONS (2)
  - Off label use [None]
  - Abscess [None]

NARRATIVE: CASE EVENT DATE: 201404
